FAERS Safety Report 8989103 (Version 2)
Quarter: 2013Q1

REPORT INFORMATION
  Report Type: Spontaneous
  Country: US (occurrence: US)
  Receive Date: 20121228
  Receipt Date: 20130320
  Transmission Date: 20140127
  Serious: No
  Sender: FDA-Public Use
  Company Number: US-ELI_LILLY_AND_COMPANY-US201212007432

PATIENT
  Sex: Male

DRUGS (15)
  1. HUMATROPE [Suspect]
     Indication: HYPOPITUITARISM
     Dosage: 0.2 MG, UNK
     Dates: start: 201212
  2. HUMATROPE [Suspect]
     Dosage: .25 MG, QD
     Route: 058
  3. CORTEF [Concomitant]
  4. SOLUCORTEF [Concomitant]
  5. DDAVP [Concomitant]
     Dosage: 0.1 MG, UNK
  6. K-DUR [Concomitant]
     Dosage: 20 MEQ, TID
  7. SYNTHROID [Concomitant]
     Dosage: 112 UG, QD
  8. OSCAL D [Concomitant]
  9. CYANOCOBALAMIN [Concomitant]
     Dosage: 1000 UG, 2/M
  10. ASA [Concomitant]
     Dosage: 325 MG, UNK
  11. VITAMIN D NOS [Concomitant]
  12. AMBIEN [Concomitant]
     Dosage: UNK, PRN
  13. FLORINEF [Concomitant]
  14. PROMETHAZINE [Concomitant]
     Dosage: 12.5 MG, UNKNOWN
  15. SERAX [Concomitant]
     Dosage: 15 MG, UNKNOWN

REACTIONS (1)
  - Drug ineffective [Unknown]
